FAERS Safety Report 4772056-8 (Version None)
Quarter: 2005Q3

REPORT INFORMATION
  Report Type: 
  Country: None (occurrence: None)
  Receive Date: 20050918
  Receipt Date: 20050526
  Transmission Date: 20060218
  Serious: Yes (Disabling)
  Sender: FDA-Public Use
  Company Number: US-MERCK-0505USA03244

PATIENT
  Age: 53 Year
  Sex: Male
  Weight: 84 kg

DRUGS (5)
  1. VIOXX [Suspect]
     Indication: ARTHRITIS
     Route: 048
     Dates: start: 19990101, end: 20030101
  2. VIOXX [Suspect]
     Indication: GOUT
     Route: 048
     Dates: start: 19990101, end: 20030101
  3. ALBUTEROL [Concomitant]
     Indication: ASTHMA
     Route: 065
  4. TORSEMIDE [Concomitant]
     Indication: FLUID RETENTION
     Route: 065
  5. ASPIRIN [Concomitant]
     Indication: PROPHYLAXIS
     Route: 065
     Dates: end: 20020101

REACTIONS (8)
  - BLOOD CHOLESTEROL INCREASED [None]
  - DEEP VEIN THROMBOSIS [None]
  - DIABETES MELLITUS [None]
  - HYPERTENSION [None]
  - OBESITY [None]
  - PAIN [None]
  - PULMONARY EMBOLISM [None]
  - THYROID DISORDER [None]
